FAERS Safety Report 24323612 (Version 1)
Quarter: 2024Q3

REPORT INFORMATION
  Report Type: Spontaneous
  Country: FR (occurrence: FR)
  Receive Date: 20240916
  Receipt Date: 20240916
  Transmission Date: 20241017
  Serious: Yes (Hospitalization)
  Sender: TEVA
  Company Number: None

PATIENT
  Age: 43 Year
  Sex: Male
  Weight: 86.3 kg

DRUGS (2)
  1. AMOXICILLIN [Suspect]
     Active Substance: AMOXICILLIN
     Indication: Erysipelas
     Dosage: 1G 3 TIMES PER DAY
     Route: 048
     Dates: start: 20240729, end: 20240731
  2. AUGMENTIN [Suspect]
     Active Substance: AMOXICILLIN\CLAVULANATE POTASSIUM
     Indication: Erysipelas
     Dosage: 1G 3 TIMES A DAY; AUGMENTIN 1 G/125 MG ADULTS, (AMOXICILLIN/CLAVULANIC ACID RATIO: 8/1)
     Route: 048
     Dates: start: 20240728, end: 20240731

REACTIONS (1)
  - Symmetrical drug-related intertriginous and flexural exanthema [Not Recovered/Not Resolved]

NARRATIVE: CASE EVENT DATE: 20240731
